FAERS Safety Report 23398265 (Version 4)
Quarter: 2024Q2

REPORT INFORMATION
  Report Type: Spontaneous
  Country: US (occurrence: US)
  Receive Date: 20240112
  Receipt Date: 20240516
  Transmission Date: 20240716
  Serious: No
  Sender: FDA-Public Use
  Company Number: US-PFIZER INC-202300251856

PATIENT
  Age: 20 Year
  Sex: Female
  Weight: 55.79 kg

DRUGS (1)
  1. OXBRYTA [Suspect]
     Active Substance: VOXELOTOR
     Indication: Full blood count abnormal
     Dosage: 500MG 2 TABLETS IN THE MORNING AND 1 TABLET AT NIGHT
     Route: 048
     Dates: start: 202305, end: 20240424

REACTIONS (1)
  - Abdominal discomfort [Unknown]
